FAERS Safety Report 25023923 (Version 3)
Quarter: 2025Q1

REPORT INFORMATION
  Report Type: Spontaneous
  Country: JP (occurrence: JP)
  Receive Date: 20250228
  Receipt Date: 20250327
  Transmission Date: 20250409
  Serious: Yes (Other)
  Sender: ALEXION PHARMACEUTICALS
  Company Number: JP-ASTRAZENECA-250018242_010520_P_1

PATIENT
  Age: 7 Decade

DRUGS (17)
  1. FULVESTRANT [Suspect]
     Active Substance: FULVESTRANT
     Indication: Breast cancer recurrent
  2. FULVESTRANT [Suspect]
     Active Substance: FULVESTRANT
  3. FULVESTRANT [Suspect]
     Active Substance: FULVESTRANT
     Indication: Breast cancer recurrent
  4. TRUQAP [Suspect]
     Active Substance: CAPIVASERTIB
     Indication: Breast cancer recurrent
  5. TRUQAP [Suspect]
     Active Substance: CAPIVASERTIB
  6. TRUQAP [Suspect]
     Active Substance: CAPIVASERTIB
  7. TRUQAP [Suspect]
     Active Substance: CAPIVASERTIB
  8. PALBOCICLIB [Concomitant]
     Active Substance: PALBOCICLIB
     Indication: Breast cancer recurrent
     Route: 065
  9. PALBOCICLIB [Concomitant]
     Active Substance: PALBOCICLIB
     Route: 065
  10. ABEMACICLIB [Concomitant]
     Active Substance: ABEMACICLIB
     Indication: Breast cancer recurrent
     Route: 065
  11. ABEMACICLIB [Concomitant]
     Active Substance: ABEMACICLIB
     Route: 065
  12. UNSPECIFIED INGREDIENT [Concomitant]
     Active Substance: UNSPECIFIED INGREDIENT
     Indication: Breast cancer recurrent
     Route: 065
  13. EVEROLIMUS [Concomitant]
     Active Substance: EVEROLIMUS
     Indication: Breast cancer recurrent
     Route: 065
  14. EVEROLIMUS [Concomitant]
     Active Substance: EVEROLIMUS
     Route: 065
  15. PACLITAXEL [Concomitant]
     Active Substance: PACLITAXEL
     Indication: Breast cancer recurrent
     Route: 065
  16. PACLITAXEL [Concomitant]
     Active Substance: PACLITAXEL
     Route: 065
  17. BEVACIZUMAB [Concomitant]
     Active Substance: BEVACIZUMAB
     Indication: Breast cancer recurrent
     Route: 065

REACTIONS (5)
  - Metastases to liver [Unknown]
  - Myelosuppression [Unknown]
  - Rash maculo-papular [Recovered/Resolved]
  - Nausea [Unknown]
  - Diarrhoea [Unknown]
